FAERS Safety Report 5366460-7 (Version None)
Quarter: 2007Q2

REPORT INFORMATION
  Report Type: 
  Country: None (occurrence: None)
  Receive Date: 20070622
  Receipt Date: 20070611
  Transmission Date: 20071010
  Serious: Yes (Other)
  Sender: FDA-Public Use
  Company Number: CA-JNJFOC-20060500147

PATIENT
  Sex: Female

DRUGS (9)
  1. REMICADE [Suspect]
     Dosage: INFUSION # 39
     Route: 042
  2. REMICADE [Suspect]
     Indication: RHEUMATOID ARTHRITIS
     Route: 042
  3. METHOTREXATE [Concomitant]
     Route: 048
  4. FOSAMAX [Concomitant]
     Route: 048
  5. PREDNISONE TAB [Concomitant]
     Route: 048
  6. CALTRATE [Concomitant]
     Route: 048
  7. SYNTHOID [Concomitant]
     Route: 048
  8. ACIDE FOLIQUE [Concomitant]
     Dosage: Q 2 DAYS
     Route: 048
  9. TYLENOL [Concomitant]
     Route: 048

REACTIONS (3)
  - BACK PAIN [None]
  - CATARACT [None]
  - TOE DEFORMITY [None]
